FAERS Safety Report 6576183-4 (Version None)
Quarter: 2010Q1

REPORT INFORMATION
  Report Type: 
  Country: None (occurrence: None)
  Receive Date: 20100209
  Receipt Date: 20100202
  Transmission Date: 20100710
  Serious: Yes (Other)
  Sender: FDA-Public Use
  Company Number: NO-MERCK-1002NOR00003

PATIENT
  Age: 62 Year
  Sex: Male

DRUGS (4)
  1. JANUMET [Suspect]
     Indication: DIABETES MELLITUS
     Route: 048
     Dates: start: 20091028, end: 20100105
  2. AMARYL [Concomitant]
     Route: 048
  3. SIMVASTATIN [Suspect]
     Route: 048
  4. METFORMIN [Concomitant]
     Route: 048

REACTIONS (1)
  - PAIN IN EXTREMITY [None]
